FAERS Safety Report 13273859 (Version 1)
Quarter: 2017Q1

REPORT INFORMATION
  Report Type: Report from Study
  Country: AU (occurrence: AU)
  Receive Date: 20170227
  Receipt Date: 20170227
  Transmission Date: 20170428
  Serious: Yes (Other)
  Sender: FDA-Public Use
  Company Number: PHHY2017AU025452

PATIENT
  Sex: Male

DRUGS (1)
  1. COSENTYX [Suspect]
     Active Substance: SECUKINUMAB
     Indication: PSORIASIS
     Dosage: 300 MG, QMO
     Route: 058
     Dates: start: 20160308

REACTIONS (3)
  - Herpes zoster [Not Recovered/Not Resolved]
  - Psoriasis [Not Recovered/Not Resolved]
  - Influenza like illness [Not Recovered/Not Resolved]
